FAERS Safety Report 7361160-6 (Version None)
Quarter: 2011Q1

REPORT INFORMATION
  Report Type: 
  Country: None (occurrence: None)
  Receive Date: 20110315
  Receipt Date: 20110315
  Transmission Date: 20110831
  Serious: Yes (Hospitalization, Other)
  Sender: FDA-Public Use
  Company Number: None

PATIENT
  Age: 57 Year
  Sex: Male
  Weight: 99.7913 kg

DRUGS (2)
  1. TRILIPIX [Suspect]
     Indication: BLOOD CHOLESTEROL
     Dosage: 1/DAY EVERY DAY MOUTH
     Route: 048
     Dates: start: 20100621
  2. TRILIPIX [Suspect]
     Indication: BLOOD CHOLESTEROL
     Dosage: 1/DAY EVERY DAY MOUTH
     Route: 048
     Dates: start: 20101226

REACTIONS (3)
  - ABDOMINAL PAIN [None]
  - ABDOMINAL DISCOMFORT [None]
  - LOSS OF EMPLOYMENT [None]
